FAERS Safety Report 18127327 (Version 3)
Quarter: 2020Q3

REPORT INFORMATION
  Report Type: Spontaneous
  Country: DE (occurrence: DE)
  Receive Date: 20200810
  Receipt Date: 20200904
  Transmission Date: 20201103
  Serious: Yes (Other)
  Sender: FDA-Public Use
  Company Number: DE-AUROBINDO-AUR-APL-2020-037920

PATIENT
  Sex: Female
  Weight: 65 kg

DRUGS (4)
  1. LAMOTRIGINE AUROBINDO TABLETS 100MG [Suspect]
     Active Substance: LAMOTRIGINE
     Dosage: 2 TABLETS IN THE MORNING AND 2 TABLETS IN THE EVENING
     Route: 048
     Dates: start: 20200525, end: 20200531
  2. VIMPAT [Concomitant]
     Active Substance: LACOSAMIDE
     Indication: PRODUCT USED FOR UNKNOWN INDICATION
     Dosage: UNK
     Route: 065
     Dates: start: 20200709
  3. LAMOTRIGINE AUROBINDO TABLETS 100MG [Suspect]
     Active Substance: LAMOTRIGINE
     Indication: EPILEPSY
     Dosage: 2 TABLETS IN THE MORNING AND 2 TABLETS IN THE EVENING
     Route: 048
     Dates: start: 2017
  4. LAMOTRIGINE AUROBINDO TABLETS 100MG [Suspect]
     Active Substance: LAMOTRIGINE
     Dosage: 2 TABLETS IN THE MORNING AND 2 TABLETS IN THE EVENING
     Route: 048

REACTIONS (4)
  - Petit mal epilepsy [Recovered/Resolved]
  - Drug ineffective [Unknown]
  - Seizure [Recovered/Resolved]
  - Epilepsy [Recovered/Resolved]

NARRATIVE: CASE EVENT DATE: 20200708
